FAERS Safety Report 10157060 (Version 1)
Quarter: 2014Q2

REPORT INFORMATION
  Report Type: Spontaneous
  Country: US (occurrence: US)
  Receive Date: 20140507
  Receipt Date: 20140507
  Transmission Date: 20141212
  Serious: No
  Sender: FDA-Public Use
  Company Number: US-PFIZER INC-2014121294

PATIENT
  Sex: 0

DRUGS (2)
  1. VISTARIL [Suspect]
     Indication: MIGRAINE
     Dosage: UNK
  2. MEPERIDINE [Concomitant]
     Dosage: UNK

REACTIONS (2)
  - Vomiting [Unknown]
  - Nausea [Unknown]
